FAERS Safety Report 10202098 (Version 2)
Quarter: 2014Q2

REPORT INFORMATION
  Report Type: Spontaneous
  Country: US (occurrence: US)
  Receive Date: 20140528
  Receipt Date: 20140528
  Transmission Date: 20141212
  Serious: Yes (Hospitalization)
  Sender: FDA-Public Use
  Company Number: US-BRISTOL-MYERS SQUIBB COMPANY-19920875

PATIENT
  Age: 46 Year
  Sex: Male
  Weight: 61.68 kg

DRUGS (3)
  1. GLUCOPHAGE [Suspect]
     Indication: DIABETES MELLITUS
     Dates: start: 201209, end: 2013
  2. LYRICA [Suspect]
     Indication: NEURALGIA
     Dosage: CAPS
  3. IRON [Suspect]
     Indication: IRON DEFICIENCY ANAEMIA
     Dosage: INF
     Route: 042

REACTIONS (3)
  - Diabetes mellitus [Unknown]
  - Drug ineffective [Unknown]
  - Blood iron decreased [Unknown]
